FAERS Safety Report 4662114-0 (Version None)
Quarter: 2005Q2

REPORT INFORMATION
  Report Type: 
  Country: None (occurrence: None)
  Receive Date: 20050512
  Receipt Date: 20050429
  Transmission Date: 20051028
  Serious: Yes (Hospitalization)
  Sender: FDA-Public Use
  Company Number: 2005BI008836

PATIENT
  Sex: Female

DRUGS (1)
  1. AVONEX [Suspect]
     Indication: MULTIPLE SCLEROSIS
     Dosage: IM
     Route: 030

REACTIONS (6)
  - ARTHRITIS INFECTIVE [None]
  - BLOOD POTASSIUM ABNORMAL [None]
  - BLOOD SODIUM ABNORMAL [None]
  - DEHYDRATION [None]
  - ELECTROLYTE IMBALANCE [None]
  - MULTIPLE SCLEROSIS RELAPSE [None]
